FAERS Safety Report 7161248-9 (Version None)
Quarter: 2010Q4

REPORT INFORMATION
  Report Type: 
  Country: None (occurrence: None)
  Receive Date: 20101210
  Receipt Date: 20101210
  Transmission Date: 20110411
  Serious: No
  Sender: FDA-Public Use
  Company Number: None

PATIENT
  Age: 55 Year
  Sex: Female
  Weight: 74.8435 kg

DRUGS (7)
  1. SIMCOR [Suspect]
     Indication: BLOOD CHOLESTEROL INCREASED
     Dosage: 1 TABLET TWICE DAILY PO; 1 TABLET ONCE DAILY PO
     Route: 048
     Dates: start: 20101105, end: 20101108
  2. SIMCOR [Suspect]
     Indication: BLOOD CHOLESTEROL INCREASED
     Dosage: 1 TABLET TWICE DAILY PO; 1 TABLET ONCE DAILY PO
     Route: 048
     Dates: start: 20101126, end: 20101128
  3. SIMCOR [Suspect]
  4. WELLBUTRIN XL [Concomitant]
  5. ADVAIR [Concomitant]
  6. SINGULAIR [Concomitant]
  7. ZERTEC [Concomitant]

REACTIONS (1)
  - INITIAL INSOMNIA [None]
